FAERS Safety Report 12447412 (Version 1)
Quarter: 2016Q2

REPORT INFORMATION
  Report Type: Spontaneous
  Country: ES (occurrence: ES)
  Receive Date: 20160608
  Receipt Date: 20160608
  Transmission Date: 20160815
  Serious: Yes (Hospitalization)
  Sender: FDA-Public Use
  Company Number: ES-TEVA-663953ISR

PATIENT
  Sex: Male

DRUGS (1)
  1. PACLITAXEL TEVA 6MG/ML CONCENTRADO PARA SOLUCION PARA PERFUSION EFG [Suspect]
     Active Substance: PACLITAXEL
     Route: 042
     Dates: start: 20160415, end: 20160415

REACTIONS (3)
  - Anal incontinence [Recovered/Resolved]
  - Presyncope [Recovered/Resolved]
  - Incorrect drug administration rate [Recovered/Resolved]

NARRATIVE: CASE EVENT DATE: 20160415
